FAERS Safety Report 14541110 (Version 1)
Quarter: 2018Q1

REPORT INFORMATION
  Report Type: Spontaneous
  Country: FR (occurrence: FR)
  Receive Date: 20180216
  Receipt Date: 20180216
  Transmission Date: 20180509
  Serious: Yes (Hospitalization, Other)
  Sender: FDA-Public Use
  Company Number: FR-OTSUKA-DJ20111419

PATIENT

DRUGS (3)
  1. MARSILID PHOSPHATE [Suspect]
     Active Substance: IPRONIAZID PHOSPHATE
     Indication: DEPRESSION
     Route: 048
     Dates: end: 20110125
  2. MARSILID PHOSPHATE [Suspect]
     Active Substance: IPRONIAZID PHOSPHATE
     Indication: DEPRESSION
     Route: 048
  3. ABILIFY [Suspect]
     Active Substance: ARIPIPRAZOLE
     Indication: SCHIZOPHRENIA
     Route: 048
     Dates: end: 20110125

REACTIONS (3)
  - Jaundice [Recovered/Resolved]
  - Hepatitis [Recovered/Resolved]
  - Hepatocellular injury [Recovered/Resolved]

NARRATIVE: CASE EVENT DATE: 20110125
